FAERS Safety Report 8858587 (Version 1)
Quarter: 2012Q4

REPORT INFORMATION
  Report Type: Report from Study
  Country: GB (occurrence: GB)
  Receive Date: 20121024
  Receipt Date: 20121024
  Transmission Date: 20130627
  Serious: Yes (Hospitalization, Other)
  Sender: FDA-Public Use
  Company Number: GB-ROCHE-1084765

PATIENT
  Age: 71 Year
  Sex: Male
  Weight: 76.9 kg

DRUGS (6)
  1. RITUXIMAB [Suspect]
     Indication: MALIGNANT LYMPHOID NEOPLASM
     Dosage: Most recent dose on : 28/Jun/2012
     Route: 042
     Dates: start: 20120529, end: 20120628
  2. RITUXIMAB [Suspect]
     Dosage: Restarted off study
     Route: 065
     Dates: start: 20120823
  3. CHLORAMBUCIL [Suspect]
     Indication: MALIGNANT LYMPHOID NEOPLASM
     Dosage: Most recent dose on 28/Jun/2012
     Route: 048
     Dates: start: 20120529, end: 20120703
  4. BENDAMUSTINE [Concomitant]
  5. ACICLOVIR [Concomitant]
     Route: 065
     Dates: start: 20120529
  6. ONDANSETRON [Concomitant]
     Route: 065
     Dates: start: 20120823

REACTIONS (2)
  - Skin reaction [Not Recovered/Not Resolved]
  - Infusion related reaction [Recovered/Resolved]
